FAERS Safety Report 17264013 (Version 2)
Quarter: 2022Q2

REPORT INFORMATION
  Report Type: Report from Study
  Country: FR (occurrence: FR)
  Receive Date: 20200113
  Receipt Date: 20220404
  Transmission Date: 20220721
  Serious: Yes (Hospitalization)
  Sender: FDA-Public Use
  Company Number: FR-DRCDAPHPP-201801988-MED

PATIENT
  Age: 70 Year
  Sex: Female
  Weight: 60 kg

DRUGS (8)
  1. RIVAROXABAN [Suspect]
     Active Substance: RIVAROXABAN
     Indication: Embolism venous
     Dosage: 20 MG, QD
     Route: 048
     Dates: start: 20180123, end: 20180215
  2. AVASTIN [Concomitant]
     Active Substance: BEVACIZUMAB
  3. PENTASA [Concomitant]
     Active Substance: MESALAMINE
     Dosage: 1 SACHET IN THE MORNING
  4. ESOMEPRAZOLE [Concomitant]
     Active Substance: ESOMEPRAZOLE
     Dosage: DAILY DOSE 40 MG
  5. OXYCONTIN [Concomitant]
     Active Substance: OXYCODONE HYDROCHLORIDE
  6. OXYCODONE HYDROCHLORIDE [Concomitant]
     Active Substance: OXYCODONE HYDROCHLORIDE
  7. ACETAMINOPHEN [Concomitant]
     Active Substance: ACETAMINOPHEN
  8. LOVENOX [Concomitant]
     Active Substance: ENOXAPARIN SODIUM
     Dosage: DAILY DOSE .4 ML

REACTIONS (3)
  - Haemorrhage [Unknown]
  - Ovarian epithelial cancer [Unknown]
  - Pulmonary embolism [Unknown]

NARRATIVE: CASE EVENT DATE: 20180215
